FAERS Safety Report 9312658 (Version 2)
Quarter: 2013Q3

REPORT INFORMATION
  Report Type: Spontaneous
  Country: ZA (occurrence: ZA)
  Receive Date: 20130528
  Receipt Date: 20130726
  Transmission Date: 20140515
  Serious: Yes (Other)
  Sender: FDA-Public Use
  Company Number: ZA-JNJFOC-20130512129

PATIENT
  Age: 50 Year
  Sex: Male
  Weight: 73 kg

DRUGS (1)
  1. BENYLIN [Suspect]
     Indication: INFLUENZA
     Route: 048

REACTIONS (2)
  - Overdose [Unknown]
  - Breath alcohol test positive [Unknown]
